FAERS Safety Report 25792764 (Version 1)
Quarter: 2025Q3

REPORT INFORMATION
  Report Type: Spontaneous
  Country: EU (occurrence: EU)
  Receive Date: 20250911
  Receipt Date: 20250911
  Transmission Date: 20251021
  Serious: Yes (Hospitalization)
  Sender: AMGEN
  Company Number: EU-AMGEN-ITASP2025175399

PATIENT
  Age: 69 Year
  Sex: Male

DRUGS (4)
  1. BEVACIZUMAB [Suspect]
     Active Substance: BEVACIZUMAB
     Indication: Hepatocellular carcinoma
     Dosage: UNK UNK, Q3WK
     Route: 065
     Dates: start: 202307
  2. BEVACIZUMAB [Suspect]
     Active Substance: BEVACIZUMAB
     Route: 065
     Dates: start: 202407
  3. ATEZOLIZUMAB [Concomitant]
     Active Substance: ATEZOLIZUMAB
     Indication: Hepatocellular carcinoma
     Dosage: UNK UNK, Q3WK
     Dates: start: 202307
  4. ATEZOLIZUMAB [Concomitant]
     Active Substance: ATEZOLIZUMAB
     Route: 065
     Dates: start: 202407

REACTIONS (3)
  - Aplasia pure red cell [Unknown]
  - Parvovirus B19 infection [Unknown]
  - Off label use [Unknown]
